FAERS Safety Report 18463410 (Version 1)
Quarter: 2020Q4

REPORT INFORMATION
  Report Type: Spontaneous
  Country: CA (occurrence: CA)
  Receive Date: 20201104
  Receipt Date: 20201104
  Transmission Date: 20210114
  Serious: Yes (Other)
  Sender: FDA-Public Use
  Company Number: CA-JNJFOC-20201044942

PATIENT
  Age: 52 Year
  Sex: Male
  Weight: 150 kg

DRUGS (3)
  1. REMICADE [Suspect]
     Active Substance: INFLIXIMAB
     Indication: RHEUMATOID ARTHRITIS
     Route: 042
  2. VITAMINS                           /00067501/ [Concomitant]
     Active Substance: VITAMINS
     Route: 065
  3. XELJANZ [Concomitant]
     Active Substance: TOFACITINIB CITRATE
     Route: 065

REACTIONS (8)
  - Off label use [Unknown]
  - Rash papular [Unknown]
  - Incorrect dose administered [Unknown]
  - Palmar erythema [Unknown]
  - Inappropriate schedule of product administration [Unknown]
  - Weight decreased [Unknown]
  - Pruritus [Unknown]
  - Thrombosis [Unknown]
